FAERS Safety Report 4745096-2 (Version None)
Quarter: 2005Q3

REPORT INFORMATION
  Report Type: 
  Country: None (occurrence: None)
  Receive Date: 20050815
  Receipt Date: 20050802
  Transmission Date: 20060218
  Serious: Yes (Hospitalization)
  Sender: FDA-Public Use
  Company Number: PL-JNJFOC-20050802125

PATIENT
  Age: 2 Year
  Sex: Male

DRUGS (3)
  1. PARACETAMOL [Suspect]
  2. PARACETAMOL [Suspect]
  3. ANTIBIOTICS [Concomitant]

REACTIONS (3)
  - GASTRIC ULCER HAEMORRHAGE [None]
  - GENERAL PHYSICAL CONDITION ABNORMAL [None]
  - HYPOVOLAEMIC SHOCK [None]
